FAERS Safety Report 23509854 (Version 3)
Quarter: 2025Q3

REPORT INFORMATION
  Report Type: Spontaneous
  Country: EU (occurrence: EU)
  Receive Date: 20240210
  Receipt Date: 20250710
  Transmission Date: 20251021
  Serious: Yes (Death, Hospitalization)
  Sender: SANDOZ
  Company Number: EU-BAYER-2015-127997

PATIENT
  Age: 58 Year
  Sex: Male

DRUGS (32)
  1. AMIKACIN [Suspect]
     Active Substance: AMIKACIN
     Indication: Proteus test positive
     Route: 065
  2. AMIKACIN [Suspect]
     Active Substance: AMIKACIN
     Indication: Pyrexia
  3. CEFTAZIDIME [Suspect]
     Active Substance: CEFTAZIDIME
     Indication: Pyrexia
     Route: 065
  4. CYCLOPHOSPHAMIDE [Suspect]
     Active Substance: CYCLOPHOSPHAMIDE
     Indication: Chronic myeloid leukaemia
     Route: 065
  5. CYCLOPHOSPHAMIDE [Suspect]
     Active Substance: CYCLOPHOSPHAMIDE
     Indication: Allogenic stem cell transplantation
  6. CYCLOPHOSPHAMIDE [Suspect]
     Active Substance: CYCLOPHOSPHAMIDE
     Indication: Bone marrow conditioning regimen
  7. CYCLOPHOSPHAMIDE [Suspect]
     Active Substance: CYCLOPHOSPHAMIDE
     Indication: Immunosuppressant drug therapy
  8. CYCLOSPORINE [Suspect]
     Active Substance: CYCLOSPORINE
     Indication: Prophylaxis
     Route: 065
  9. CYCLOSPORINE [Suspect]
     Active Substance: CYCLOSPORINE
     Indication: Prophylaxis against graft versus host disease
  10. CYCLOSPORINE [Suspect]
     Active Substance: CYCLOSPORINE
     Indication: Stem cell transplant
  11. CYCLOSPORINE [Suspect]
     Active Substance: CYCLOSPORINE
     Indication: Stem cell transplant
  12. CYTARABINE [Suspect]
     Active Substance: CYTARABINE
     Indication: Chronic myeloid leukaemia
     Route: 065
  13. CYTARABINE [Suspect]
     Active Substance: CYTARABINE
     Indication: Bone marrow conditioning regimen
  14. CYTARABINE [Suspect]
     Active Substance: CYTARABINE
     Indication: Chemotherapy
  15. CIPROFLOXACIN [Suspect]
     Active Substance: CIPROFLOXACIN
     Indication: Proteus test positive
     Route: 065
  16. CIPROFLOXACIN [Suspect]
     Active Substance: CIPROFLOXACIN
     Indication: Culture stool positive
  17. CIPROFLOXACIN [Suspect]
     Active Substance: CIPROFLOXACIN
     Indication: Proteus test positive
  18. FLUDARABINE [Suspect]
     Active Substance: FLUDARABINE PHOSPHATE
     Indication: Chronic myeloid leukaemia
     Route: 065
  19. IMIPENEM [Suspect]
     Active Substance: IMIPENEM
     Indication: Pyrexia
     Route: 065
  20. MYCOPHENOLATE MOFETIL [Suspect]
     Active Substance: MYCOPHENOLATE MOFETIL
     Indication: Prophylaxis
     Dosage: 15 MG/KG, QD
     Route: 065
  21. MYCOPHENOLATE MOFETIL [Suspect]
     Active Substance: MYCOPHENOLATE MOFETIL
     Indication: Stem cell transplant
     Route: 065
  22. MYCOPHENOLATE MOFETIL [Suspect]
     Active Substance: MYCOPHENOLATE MOFETIL
     Indication: Allogenic stem cell transplantation
  23. MYCOPHENOLATE MOFETIL [Suspect]
     Active Substance: MYCOPHENOLATE MOFETIL
     Indication: Prophylaxis against graft versus host disease
  24. MYCOPHENOLATE MOFETIL [Suspect]
     Active Substance: MYCOPHENOLATE MOFETIL
     Indication: Prophylaxis against graft versus host disease
  25. PIPERACILLIN SODIUM\TAZOBACTAM SODIUM [Suspect]
     Active Substance: PIPERACILLIN SODIUM\TAZOBACTAM SODIUM
     Indication: Pyrexia
     Route: 065
  26. PIPERACILLIN [Suspect]
     Active Substance: PIPERACILLIN
     Indication: Pyrexia
     Route: 065
  27. AMSACRINE [Concomitant]
     Active Substance: AMSACRINE
     Indication: Chronic myeloid leukaemia
     Route: 065
  28. AMSACRINE [Concomitant]
     Active Substance: AMSACRINE
     Indication: Chemotherapy
  29. LAPINE T-LYMPHOCYTE IMMUNE GLOBULIN [Concomitant]
     Active Substance: LAPINE T-LYMPHOCYTE IMMUNE GLOBULIN
     Indication: Allogenic stem cell transplantation
     Route: 065
  30. LAPINE T-LYMPHOCYTE IMMUNE GLOBULIN [Concomitant]
     Active Substance: LAPINE T-LYMPHOCYTE IMMUNE GLOBULIN
     Indication: Bone marrow conditioning regimen
  31. LENOGRASTIM [Concomitant]
     Active Substance: LENOGRASTIM
     Indication: Bone marrow conditioning regimen
     Route: 065
  32. VORICONAZOLE [Concomitant]
     Active Substance: VORICONAZOLE
     Indication: Aspergillus test positive
     Route: 065

REACTIONS (15)
  - Death [Fatal]
  - Vomiting [Fatal]
  - Pyrexia [Fatal]
  - Hypoxia [Fatal]
  - Rash erythematous [Fatal]
  - Diarrhoea [Fatal]
  - Dermatitis infected [Fatal]
  - Clostridium difficile colitis [Fatal]
  - Aspergillus infection [Fatal]
  - Hallucination [Fatal]
  - Large intestine infection [Fatal]
  - Acute graft versus host disease in intestine [Fatal]
  - Dyspnoea [Fatal]
  - Multiple organ dysfunction syndrome [Fatal]
  - Bronchopulmonary aspergillosis [Fatal]
